FAERS Safety Report 12218297 (Version 1)
Quarter: 2016Q1

REPORT INFORMATION
  Report Type: Spontaneous
  Country: US (occurrence: US)
  Receive Date: 20160329
  Receipt Date: 20160329
  Transmission Date: 20160526
  Serious: No
  Sender: FDA-Public Use
  Company Number: ALCN2016US002110

PATIENT
  Age: 65 Year
  Sex: Female

DRUGS (1)
  1. TEARS NATURALE FREE [Suspect]
     Active Substance: DEXTRAN 70\HYPROMELLOSE 2910 (4000 MPA.S)
     Indication: DRY EYE
     Dosage: 2 GTT, PRN
     Route: 047

REACTIONS (3)
  - Conjunctivitis [Recovered/Resolved]
  - Conjunctivitis [Recovered/Resolved]
  - Conjunctivitis [Not Recovered/Not Resolved]

NARRATIVE: CASE EVENT DATE: 20160130
